FAERS Safety Report 16979105 (Version 2)
Quarter: 2020Q1

REPORT INFORMATION
  Report Type: Spontaneous
  Country: US (occurrence: US)
  Receive Date: 20191031
  Receipt Date: 20200226
  Transmission Date: 20200409
  Serious: No
  Sender: FDA-Public Use
  Company Number: US-PFIZER INC-2019471988

PATIENT
  Age: 73 Year
  Sex: Female

DRUGS (2)
  1. MORPHINE SULFATE. [Suspect]
     Active Substance: MORPHINE SULFATE
     Dosage: UNK
  2. CODEINE SULFATE. [Suspect]
     Active Substance: CODEINE SULFATE
     Dosage: UNK

REACTIONS (2)
  - Drug hypersensitivity [Unknown]
  - Headache [Unknown]
